FAERS Safety Report 19855918 (Version 1)
Quarter: 2021Q3

REPORT INFORMATION
  Report Type: Spontaneous
  Country: DE (occurrence: DE)
  Receive Date: 20210920
  Receipt Date: 20210920
  Transmission Date: 20211014
  Serious: No
  Sender: FDA-Public Use
  Company Number: DE-GW PHARMA-202109DEGW04416

PATIENT

DRUGS (11)
  1. EPIDYOLEX [Suspect]
     Active Substance: CANNABIDIOL
     Indication: SEVERE MYOCLONIC EPILEPSY OF INFANCY
     Dosage: 350 MILLIGRAM, BID
     Route: 048
  2. FINTEPLA [Concomitant]
     Active Substance: FENFLURAMINE
     Indication: EPILEPSY
     Dosage: 3 MILLILITER, BID (3 ? 0 ? 3 ML)
     Route: 065
     Dates: start: 2021
  3. RUFINAMIDE [Concomitant]
     Active Substance: RUFINAMIDE
     Indication: EPILEPSY
     Dosage: 1600 MILLIGRAM, BID (4?0?4)
     Route: 065
  4. VALPROATE [Concomitant]
     Active Substance: VALPROIC ACID
     Indication: EPILEPSY
     Dosage: 1000 MILLIGRAM, BID (1?0?1)
     Route: 065
  5. DIACOMIT [Concomitant]
     Active Substance: STIRIPENTOL
     Indication: EPILEPSY
     Dosage: 1250 MILLIGRAM, QD (750?0?500 MILLIGRAM)
     Route: 065
  6. ORFIRIL LONG [Concomitant]
     Active Substance: VALPROIC ACID
     Indication: EPILEPSY
     Dosage: 1000 MILLIGRAM, BID (1000 MILLIGRAM?0?1000 MILLIGRAM)
     Route: 065
  7. CLONAZEPAM. [Concomitant]
     Active Substance: CLONAZEPAM
     Indication: EPILEPSY
     Dosage: UNK, PRN
     Route: 065
  8. PHENOBARBITAL. [Concomitant]
     Active Substance: PHENOBARBITAL
     Indication: EPILEPSY
     Dosage: 100 MILLIGRAM, QD (0?0?1)
     Route: 065
  9. FRISIUM [Concomitant]
     Active Substance: CLOBAZAM
     Indication: EPILEPSY
     Dosage: 5 MILLIGRAM, BID (5 MILLIGRAM?0?5 MILLIGRAM)
     Route: 065
  10. LUMINAL [PHENOBARBITAL] [Concomitant]
     Indication: EPILEPSY
     Dosage: 25 MILLIGRAM, QD (0 ? 0 ? 25 MG (TO BE DISCONTINUED))
     Route: 065
     Dates: start: 2021
  11. EPIDYOLEX [Suspect]
     Active Substance: CANNABIDIOL
     Dosage: 250 MILLIGRAM, BID
     Route: 048
     Dates: start: 2021

REACTIONS (2)
  - Diarrhoea [Recovering/Resolving]
  - Seizure [Not Recovered/Not Resolved]

NARRATIVE: CASE EVENT DATE: 202101
